FAERS Safety Report 10540392 (Version 1)
Quarter: 2014Q4

REPORT INFORMATION
  Report Type: Report from Study
  Country: AU (occurrence: AU)
  Receive Date: 20141024
  Receipt Date: 20141024
  Transmission Date: 20150529
  Serious: Yes (Hospitalization, Other)
  Sender: FDA-Public Use
  Company Number: AU-BAYER-2014-149471

PATIENT
  Age: 63 Year
  Sex: Female

DRUGS (3)
  1. REGORAFENIB [Suspect]
     Active Substance: REGORAFENIB
     Indication: METASTASES TO OVARY
  2. REGORAFENIB [Suspect]
     Active Substance: REGORAFENIB
     Indication: ADENOCARCINOMA OF COLON
     Dosage: 160 MG, QD (ONCE DAILY)
     Route: 048
     Dates: start: 20131228, end: 20140108
  3. REGORAFENIB [Suspect]
     Active Substance: REGORAFENIB
     Indication: METASTASES TO PERITONEUM

REACTIONS (13)
  - Nausea [None]
  - Fatigue [None]
  - Rash [Recovering/Resolving]
  - Diarrhoea [None]
  - Pyrexia [None]
  - Rash maculo-papular [Recovering/Resolving]
  - Vomiting [None]
  - Malaise [None]
  - Mouth ulceration [Recovering/Resolving]
  - Lethargy [None]
  - Herpes simplex [None]
  - Renal impairment [Recovered/Resolved]
  - Dehydration [None]

NARRATIVE: CASE EVENT DATE: 201401
